FAERS Safety Report 15757026 (Version 1)
Quarter: 2018Q4

REPORT INFORMATION
  Report Type: Spontaneous
  Country: GB (occurrence: GB)
  Receive Date: 20181224
  Receipt Date: 20181224
  Transmission Date: 20190205
  Serious: Yes (Other)
  Sender: FDA-Public Use
  Company Number: GB-B.I. PHARMACEUTICALS,INC./RIDGEFIELD-2018-12-004132

PATIENT
  Age: 83 Year
  Sex: Male
  Weight: 82.55 kg

DRUGS (5)
  1. SIMVASTATIN. [Concomitant]
     Active Substance: SIMVASTATIN
     Indication: PRODUCT USED FOR UNKNOWN INDICATION
     Route: 065
  2. GLICLAZIDE [Concomitant]
     Active Substance: GLICLAZIDE
     Indication: PRODUCT USED FOR UNKNOWN INDICATION
     Route: 065
     Dates: end: 2018
  3. JANUVIA [Concomitant]
     Active Substance: SITAGLIPTIN PHOSPHATE
     Indication: PRODUCT USED FOR UNKNOWN INDICATION
     Route: 065
  4. TRAJENTA [Suspect]
     Active Substance: LINAGLIPTIN
     Indication: BLOOD GLUCOSE INCREASED
     Dosage: FORM. OF ADMINISTRATION: PILLULES
     Route: 048
     Dates: start: 20181011, end: 20181023
  5. METFORMIN [Concomitant]
     Active Substance: METFORMIN HYDROCHLORIDE
     Indication: PRODUCT USED FOR UNKNOWN INDICATION
     Route: 065

REACTIONS (12)
  - Fatigue [Recovered/Resolved]
  - Irritability [Recovered/Resolved]
  - Vision blurred [Recovered/Resolved]
  - Pallor [Recovered/Resolved]
  - Mood altered [Recovered/Resolved]
  - Disturbance in attention [Recovered/Resolved]
  - Amnesia [Recovered/Resolved]
  - Confusional state [Unknown]
  - Thinking abnormal [Recovered/Resolved]
  - Anxiety [Recovered/Resolved]
  - Headache [Unknown]
  - Dysarthria [Recovered/Resolved]

NARRATIVE: CASE EVENT DATE: 20181014
